FAERS Safety Report 25431064 (Version 1)
Quarter: 2025Q2

REPORT INFORMATION
  Report Type: Spontaneous
  Country: US (occurrence: US)
  Receive Date: 20250612
  Receipt Date: 20250612
  Transmission Date: 20250716
  Serious: Yes (Hospitalization)
  Sender: AMGEN
  Company Number: US-AMGEN-USASP2025112923

PATIENT
  Sex: Male

DRUGS (3)
  1. NPLATE [Suspect]
     Active Substance: ROMIPLOSTIM
     Indication: Platelet count decreased
     Route: 065
  2. NPLATE [Suspect]
     Active Substance: ROMIPLOSTIM
     Indication: Hepatic cancer metastatic
  3. NPLATE [Suspect]
     Active Substance: ROMIPLOSTIM
     Indication: Pancreatic carcinoma

REACTIONS (2)
  - Chemotherapy [Unknown]
  - Off label use [Unknown]
